FAERS Safety Report 23425054 (Version 2)
Quarter: 2024Q1

REPORT INFORMATION
  Report Type: Report from Study
  Country: US (occurrence: US)
  Receive Date: 20240121
  Receipt Date: 20240127
  Transmission Date: 20240410
  Serious: No
  Sender: FDA-Public Use
  Company Number: US-ABBVIE-5598338

PATIENT
  Age: 83 Year
  Sex: Female

DRUGS (3)
  1. HUMIRA [Suspect]
     Active Substance: ADALIMUMAB
     Indication: Crohn^s disease
     Dosage: CITRATE FREE?FORM STRENGTH 40 MILLIGRAMS
     Route: 058
     Dates: start: 20230224
  2. WARFARIN [Concomitant]
     Active Substance: WARFARIN
     Indication: Thrombosis
  3. KEPPRA [Concomitant]
     Active Substance: LEVETIRACETAM
     Indication: Seizure

REACTIONS (1)
  - Constipation [Recovered/Resolved]

NARRATIVE: CASE EVENT DATE: 20240101
